FAERS Safety Report 13746316 (Version 2)
Quarter: 2017Q3

REPORT INFORMATION
  Report Type: Report from Study
  Country: US (occurrence: US)
  Receive Date: 20170712
  Receipt Date: 20170821
  Transmission Date: 20171127
  Serious: Yes (Other)
  Sender: FDA-Public Use
  Company Number: US-BRISTOL-MYERS SQUIBB COMPANY-BMS-2017-017151

PATIENT
  Sex: Female

DRUGS (1)
  1. NIVOLUMAB [Suspect]
     Active Substance: NIVOLUMAB
     Indication: MALIGNANT MELANOMA
     Dosage: UNK
     Route: 042

REACTIONS (11)
  - Neck pain [Unknown]
  - Wound [Unknown]
  - Rash [Unknown]
  - Fatigue [Unknown]
  - Nail avulsion [Unknown]
  - Constipation [Unknown]
  - Thyroid function test abnormal [Unknown]
  - Musculoskeletal stiffness [Unknown]
  - Appetite disorder [Unknown]
  - Arthralgia [Unknown]
  - Carpal tunnel syndrome [Unknown]
